FAERS Safety Report 7798946-X (Version None)
Quarter: 2011Q4

REPORT INFORMATION
  Report Type: 
  Country: None (occurrence: None)
  Receive Date: 20111006
  Receipt Date: 20110805
  Transmission Date: 20120403
  Serious: No
  Sender: FDA-Public Use
  Company Number: US-PFIZER INC-2011236297

PATIENT
  Sex: Female

DRUGS (5)
  1. ENBREL [Suspect]
     Indication: PSORIASIS
     Dosage: 50 MG, 2 TIMES/WK
  2. PRILOCAINE HYDROCHLORIDE [Suspect]
     Dosage: UNK
  3. ENBREL [Suspect]
     Indication: GUTTATE PSORIASIS
  4. LIDOCAINE HYDROCHLORIDE [Suspect]
     Dosage: UNK
  5. HUMIRA [Concomitant]
     Dosage: UNK

REACTIONS (4)
  - PSORIASIS [None]
  - NASOPHARYNGITIS [None]
  - INJECTION SITE PAIN [None]
  - DRUG INEFFECTIVE [None]
